FAERS Safety Report 15415660 (Version 2)
Quarter: 2018Q4

REPORT INFORMATION
  Report Type: Spontaneous
  Country: JP (occurrence: JP)
  Receive Date: 20180922
  Receipt Date: 20181201
  Transmission Date: 20190204
  Serious: Yes (Other)
  Sender: FDA-Public Use
  Company Number: JP-AMGEN-JPNSP2018132276

PATIENT
  Age: 9 Decade
  Sex: Female
  Weight: 49 kg

DRUGS (2)
  1. RANMARK [Suspect]
     Active Substance: DENOSUMAB
     Indication: METASTASES TO BONE
     Dosage: 120 MG, UNK
     Route: 058
     Dates: start: 20170227, end: 20170327
  2. RANMARK [Suspect]
     Active Substance: DENOSUMAB
     Dosage: 120 MG, UNK
     Route: 058
     Dates: start: 20171002

REACTIONS (2)
  - Osteonecrosis of jaw [Unknown]
  - Duodenal obstruction [Unknown]

NARRATIVE: CASE EVENT DATE: 20170307
